FAERS Safety Report 6739566-5 (Version None)
Quarter: 2010Q2

REPORT INFORMATION
  Report Type: 
  Country: None (occurrence: None)
  Receive Date: 20100525
  Receipt Date: 20100308
  Transmission Date: 20101027
  Serious: Yes (Other)
  Sender: FDA-Public Use
  Company Number: US-AMGEN-QUU391085

PATIENT
  Sex: Female
  Weight: 45.8 kg

DRUGS (3)
  1. NPLATE [Suspect]
     Indication: IDIOPATHIC THROMBOCYTOPENIC PURPURA
     Route: 058
     Dates: start: 20090305, end: 20090923
  2. PREDNISONE TAB [Concomitant]
     Dates: start: 20060823, end: 20090305
  3. IMMU-G [Concomitant]
     Dates: start: 20070412

REACTIONS (1)
  - DRUG INEFFECTIVE [None]
